FAERS Safety Report 4471647-1 (Version None)
Quarter: 2004Q4

REPORT INFORMATION
  Report Type: 
  Country: None (occurrence: None)
  Receive Date: 20041012
  Receipt Date: 20040909
  Transmission Date: 20050328
  Serious: Yes (Hospitalization, Other)
  Sender: FDA-Public Use
  Company Number: 200416929US

PATIENT
  Sex: Male
  Weight: 139 kg

DRUGS (3)
  1. LANTUS [Suspect]
     Indication: DIABETES MELLITUS NON-INSULIN-DEPENDENT
     Dosage: DOSE UNIT: UNITS
     Route: 058
     Dates: start: 20040902, end: 20040906
  2. INSULIN NOS [Concomitant]
     Dosage: DOSE: 10-20; DOSE UNIT: UNITS
  3. TPN [Concomitant]
     Dosage: DOSE UNIT: UNITS
     Dates: start: 20040902, end: 20040903

REACTIONS (9)
  - ANAEMIA [None]
  - COLON CANCER [None]
  - DYSPNOEA [None]
  - HYPOGLYCAEMIA [None]
  - INCREASED INSULIN REQUIREMENT [None]
  - INSULIN RESISTANCE [None]
  - POST PROCEDURAL COMPLICATION [None]
  - RENAL FAILURE ACUTE [None]
  - RESPIRATORY FAILURE [None]
